FAERS Safety Report 16812208 (Version 1)
Quarter: 2019Q3

REPORT INFORMATION
  Report Type: Spontaneous
  Country: FR (occurrence: FR)
  Receive Date: 20190916
  Receipt Date: 20190916
  Transmission Date: 20191005
  Serious: Yes (Hospitalization)
  Sender: FDA-Public Use
  Company Number: FR-MYLANLABS-2019M1085871

PATIENT
  Age: 78 Year
  Sex: Female

DRUGS (3)
  1. JANUVIA [Interacting]
     Active Substance: SITAGLIPTIN PHOSPHATE
     Indication: TYPE 2 DIABETES MELLITUS
     Dosage: UNK
     Route: 048
     Dates: start: 20190105, end: 20190404
  2. ATORVASTATIN [Suspect]
     Active Substance: ATORVASTATIN
     Indication: PROPHYLAXIS
     Dosage: 80 MILLIGRAM
     Route: 048
     Dates: start: 20190105, end: 20190404
  3. METFORMINE                         /00082701/ [Concomitant]
     Active Substance: METFORMIN HYDROCHLORIDE
     Indication: TYPE 2 DIABETES MELLITUS
     Dosage: UNK
     Route: 048
     Dates: start: 20190105, end: 20190404

REACTIONS (4)
  - Renal failure [Recovering/Resolving]
  - Myalgia [Recovering/Resolving]
  - Drug interaction [Unknown]
  - Hepatitis cholestatic [Recovering/Resolving]

NARRATIVE: CASE EVENT DATE: 20190125
